FAERS Safety Report 17101612 (Version 1)
Quarter: 2019Q4

REPORT INFORMATION
  Report Type: Spontaneous
  Country: AT (occurrence: AT)
  Receive Date: 20191202
  Receipt Date: 20191202
  Transmission Date: 20200122
  Serious: Yes (Other)
  Sender: FDA-Public Use
  Company Number: AT-PURDUE PHARMA-GBR-2019-0073255

PATIENT
  Sex: Female

DRUGS (2)
  1. HYDAL [Suspect]
     Active Substance: HYDROMORPHONE HYDROCHLORIDE
     Indication: PRODUCT USED FOR UNKNOWN INDICATION
     Dosage: UNK
     Route: 065
  2. DUROGESIC [Suspect]
     Active Substance: FENTANYL
     Indication: MULTIPLE SCLEROSIS
     Dosage: 75 MCG/HR, UNK (DUROGESIC PATCH MATRIX 75.00 MCG/HR)
     Route: 062

REACTIONS (9)
  - Therapeutic product effect decreased [Unknown]
  - Diabetes mellitus [Unknown]
  - Gastritis [Unknown]
  - Product use in unapproved indication [Unknown]
  - Overdose [Unknown]
  - Hyperhidrosis [Not Recovered/Not Resolved]
  - Off label use [Unknown]
  - Multiple sclerosis [Unknown]
  - Product complaint [Unknown]
